FAERS Safety Report 8566772-X (Version None)
Quarter: 2012Q3

REPORT INFORMATION
  Report Type: 
  Country: None (occurrence: None)
  Receive Date: 20120803
  Receipt Date: 20110812
  Transmission Date: 20120928
  Serious: No
  Sender: FDA-Public Use
  Company Number: US-ABBOTT-11P-163-0845954-00

PATIENT
  Sex: Male

DRUGS (4)
  1. NIASPAN [Suspect]
     Dosage: 500 MG AT BEDTIME
     Dates: start: 20110201
  2. ASPIRIN [Concomitant]
     Indication: PRODUCT USED FOR UNKNOWN INDICATION
  3. PROSTENE [Concomitant]
     Indication: PRODUCT USED FOR UNKNOWN INDICATION
  4. NIASPAN [Suspect]
     Indication: LOW DENSITY LIPOPROTEIN INCREASED
     Dosage: 500 MG AT BEDTIME
     Dates: start: 20050101

REACTIONS (4)
  - PARAESTHESIA [None]
  - PRURITUS [None]
  - HOT FLUSH [None]
  - ADVERSE DRUG REACTION [None]
